FAERS Safety Report 11157557 (Version 1)
Quarter: 2015Q2

REPORT INFORMATION
  Report Type: Spontaneous
  Country: GB (occurrence: GB)
  Receive Date: 20150603
  Receipt Date: 20150603
  Transmission Date: 20150821
  Serious: Yes (Death, Other)
  Sender: FDA-Public Use
  Company Number: GB-TEVA-565628ACC

PATIENT
  Age: 67 Year
  Sex: Female
  Weight: 95.6 kg

DRUGS (5)
  1. ATORVASTATIN [Concomitant]
     Active Substance: ATORVASTATIN
  2. ESOMEPRAZOLE [Concomitant]
     Active Substance: ESOMEPRAZOLE
  3. LEVOTHYROXINE [Concomitant]
     Active Substance: LEVOTHYROXINE
  4. NITROFURANTOIN. [Suspect]
     Active Substance: NITROFURANTOIN
     Indication: URINARY TRACT INFECTION
     Dosage: 50 MILLIGRAM DAILY;
     Route: 048
     Dates: start: 20130320, end: 20150126
  5. SOLIFENACIN [Concomitant]
     Active Substance: SOLIFENACIN

REACTIONS (4)
  - Dyspnoea [Unknown]
  - Bronchopneumonia [Not Recovered/Not Resolved]
  - Cough [Unknown]
  - Pulmonary fibrosis [Fatal]

NARRATIVE: CASE EVENT DATE: 20141212
